FAERS Safety Report 5005512-8 (Version None)
Quarter: 2006Q2

REPORT INFORMATION
  Report Type: 
  Country: None (occurrence: None)
  Receive Date: 20060518
  Receipt Date: 20060509
  Transmission Date: 20061013
  Serious: Yes (Other)
  Sender: FDA-Public Use
  Company Number: US-ROCHE-447518

PATIENT
  Age: 45 Year
  Sex: Male

DRUGS (2)
  1. PEGASYS [Suspect]
     Indication: HEPATITIS C
     Dosage: ROUTE REPORTED AS INJECTABLE.
     Route: 050
  2. PEGASYS [Suspect]
     Dosage: SKIPPED ONE DOSE DUE TO SURGERY OF ANAL FISSURE AND TAG.
     Route: 050

REACTIONS (5)
  - ANAL FISSURE [None]
  - ANAL SKIN TAGS [None]
  - CHAPPED LIPS [None]
  - INGROWING NAIL [None]
  - RASH [None]
